FAERS Safety Report 8461271-8 (Version None)
Quarter: 2012Q2

REPORT INFORMATION
  Report Type: 
  Country: None (occurrence: None)
  Receive Date: 20120625
  Receipt Date: 20120620
  Transmission Date: 20120825
  Serious: Yes (Hospitalization, Other)
  Sender: FDA-Public Use
  Company Number: US-PFIZER INC-2012000893

PATIENT
  Sex: Male

DRUGS (1)
  1. CHANTIX [Suspect]
     Indication: SMOKING CESSATION THERAPY
     Dosage: STARTER PACK
     Dates: start: 20091210, end: 20091230

REACTIONS (4)
  - INTENTIONAL OVERDOSE [None]
  - DEPRESSION [None]
  - ANXIETY [None]
  - SUICIDE ATTEMPT [None]
